FAERS Safety Report 19006467 (Version 1)
Quarter: 2021Q1

REPORT INFORMATION
  Report Type: Spontaneous
  Country: MX (occurrence: MX)
  Receive Date: 20210315
  Receipt Date: 20210315
  Transmission Date: 20210420
  Serious: Yes (Disabling)
  Sender: FDA-Public Use
  Company Number: MX-BRISTOL-MYERS SQUIBB COMPANY-BMS-2021-021141

PATIENT
  Age: 53 Year
  Sex: Male
  Weight: 120 kg

DRUGS (4)
  1. SPRYCEL [Concomitant]
     Active Substance: DASATINIB
     Dosage: ONE TABLET TWICE A DAY
     Route: 048
     Dates: start: 20201120, end: 20210210
  2. SPRYCEL [Concomitant]
     Active Substance: DASATINIB
     Indication: CHRONIC MYELOID LEUKAEMIA
     Dosage: UNK
  3. HYDREA [Suspect]
     Active Substance: HYDROXYUREA
     Dosage: 1 TABLET TWICE A DAY
     Route: 048
     Dates: start: 20210210
  4. HYDREA [Suspect]
     Active Substance: HYDROXYUREA
     Indication: CHRONIC MYELOID LEUKAEMIA
     Dosage: 1 TABLET TWICE A DAY
     Route: 048
     Dates: start: 20201117, end: 20201120

REACTIONS (7)
  - Decreased appetite [Unknown]
  - Off label use [Unknown]
  - Nausea [Unknown]
  - Gingival bleeding [Unknown]
  - Somnolence [Unknown]
  - Vision blurred [Unknown]
  - Epistaxis [Unknown]

NARRATIVE: CASE EVENT DATE: 202102
